FAERS Safety Report 11214755 (Version 2)
Quarter: 2015Q3

REPORT INFORMATION
  Report Type: Spontaneous
  Country: JP (occurrence: JP)
  Receive Date: 20150624
  Receipt Date: 20150804
  Transmission Date: 20151125
  Serious: Yes (Other)
  Sender: FDA-Public Use
  Company Number: JP-ROCHE-1598447

PATIENT
  Age: 84 Year
  Sex: Male

DRUGS (15)
  1. AMLODIN [Concomitant]
     Active Substance: AMLODIPINE BESYLATE
     Route: 048
  2. LUCENTIS [Suspect]
     Active Substance: RANIBIZUMAB
     Dosage: LEFT EYE, 22ND ADMINISTRATION
     Route: 031
     Dates: start: 20150602
  3. CRAVIT [Concomitant]
     Active Substance: LEVOFLOXACIN
     Route: 065
     Dates: start: 20091004, end: 20111107
  4. MUCOSTA [Concomitant]
     Active Substance: REBAMIPIDE
     Route: 048
     Dates: start: 20091004
  5. LUCENTIS [Suspect]
     Active Substance: RANIBIZUMAB
     Dosage: LEFT EYE; 10TH ADMINISTRATION,
     Route: 031
     Dates: start: 20111117
  6. GATIFLOXACIN. [Concomitant]
     Active Substance: GATIFLOXACIN
     Route: 065
     Dates: start: 20111107, end: 20130627
  7. FLOMOX (CEFCAPENE PIVOXIL HYDROCHLORIDE) [Concomitant]
     Active Substance: CEFCAPENE PIVOXIL HYDROCHLORIDE
     Route: 048
     Dates: start: 20091004
  8. GRAMALIL [Concomitant]
     Active Substance: TIAPRIDE HYDROCHLORIDE
     Route: 048
  9. LUCENTIS [Suspect]
     Active Substance: RANIBIZUMAB
     Indication: AGE-RELATED MACULAR DEGENERATION
     Dosage: LEFT EYE
     Route: 031
     Dates: start: 20090804
  10. LUCENTIS [Suspect]
     Active Substance: RANIBIZUMAB
     Dosage: LEFT EYE, 15TH ADMINISTRATION
     Route: 031
     Dates: start: 20121204
  11. LUCENTIS [Suspect]
     Active Substance: RANIBIZUMAB
     Dosage: LEFT EYE, 17TH ADMINISTRATION
     Route: 031
     Dates: start: 20130627
  12. LUCENTIS [Suspect]
     Active Substance: RANIBIZUMAB
     Dosage: LEFT EYE, 18TH ADMINISTRATION
     Route: 031
     Dates: start: 20140227
  13. LUCENTIS [Suspect]
     Active Substance: RANIBIZUMAB
     Dosage: LEFT EYE, 5TH ADMINISTRATION
     Route: 031
     Dates: start: 20100316
  14. LUCENTIS [Suspect]
     Active Substance: RANIBIZUMAB
     Dosage: LEFT EYE; 21ST ADMINISTRATION
     Route: 031
     Dates: start: 20141030
  15. CRAVIT [Concomitant]
     Active Substance: LEVOFLOXACIN
     Route: 065
     Dates: start: 20130627

REACTIONS (1)
  - Brain stem haemorrhage [Recovering/Resolving]

NARRATIVE: CASE EVENT DATE: 20141210
